FAERS Safety Report 4795761-6 (Version None)
Quarter: 2005Q3

REPORT INFORMATION
  Report Type: 
  Country: None (occurrence: None)
  Receive Date: 20050916
  Receipt Date: 20040823
  Transmission Date: 20060218
  Serious: Yes (Hospitalization)
  Sender: FDA-Public Use
  Company Number: US-JNJFOC-20040708156

PATIENT
  Age: 43 Year
  Sex: Male
  Weight: 75.7507 kg

DRUGS (7)
  1. TOPAMAX [Suspect]
     Dosage: 25 MG, 1 IN 1 DAY, ORAL
     Route: 048
     Dates: start: 20030521, end: 20040510
  2. COUMADIN [Concomitant]
  3. COREG [Concomitant]
  4. LANOXIN [Concomitant]
  5. DEMADEX [Concomitant]
  6. ALTACE [Concomitant]
  7. GABITRIL [Concomitant]

REACTIONS (1)
  - NEPHROLITHIASIS [None]
